FAERS Safety Report 6725324-4 (Version None)
Quarter: 2010Q2

REPORT INFORMATION
  Report Type: 
  Country: None (occurrence: None)
  Receive Date: 20100514
  Receipt Date: 20100506
  Transmission Date: 20101027
  Serious: Yes (Hospitalization)
  Sender: FDA-Public Use
  Company Number: JP-ABBOTT-10P-087-0640508-00

PATIENT
  Sex: Female

DRUGS (1)
  1. LEUPLIN FOR INJECTION 1.88 [Suspect]
     Indication: UTERINE LEIOMYOMA
     Route: 058

REACTIONS (1)
  - HAEMORRHAGE [None]
